FAERS Safety Report 5562455-9 (Version None)
Quarter: 2007Q4

REPORT INFORMATION
  Report Type: 
  Country: None (occurrence: None)
  Receive Date: 20071215
  Receipt Date: 20070710
  Transmission Date: 20080405
  Serious: No
  Sender: FDA-Public Use
  Company Number: US-AMGEN-US233236

PATIENT
  Sex: Male

DRUGS (12)
  1. ARANESP [Suspect]
     Indication: RENAL FAILURE CHRONIC
     Route: 058
     Dates: start: 20040917
  2. AMLODIPINE [Concomitant]
     Route: 065
  3. ASPIRIN [Concomitant]
     Route: 065
  4. FUROSEMIDE [Concomitant]
     Route: 065
  5. ISORBID [Concomitant]
     Route: 065
  6. LIPITOR [Concomitant]
     Route: 065
  7. NITROGLYCERIN [Concomitant]
     Route: 060
  8. OMEPRAZOLE [Concomitant]
     Route: 065
  9. PLAVIX [Concomitant]
     Route: 065
  10. POTASSIUM CHLORIDE [Concomitant]
     Route: 065
  11. TOPROL-XL [Concomitant]
     Route: 065
  12. VITAMIN B-12 [Concomitant]
     Route: 065

REACTIONS (2)
  - DRUG INEFFECTIVE [None]
  - VITAMIN B12 DEFICIENCY [None]
